FAERS Safety Report 17403885 (Version 2)
Quarter: 2020Q1

REPORT INFORMATION
  Report Type: Spontaneous
  Country: PL (occurrence: PL)
  Receive Date: 20200211
  Receipt Date: 20200213
  Transmission Date: 20200409
  Serious: Yes (Life-Threatening, Hospitalization, Other)
  Sender: FDA-Public Use
  Company Number: PL-MYLANLABS-2020M1015973

PATIENT
  Age: 38 Year
  Sex: Female

DRUGS (3)
  1. CLOPIDOGREL [Suspect]
     Active Substance: CLOPIDOGREL BISULFATE
     Indication: ANTICOAGULANT THERAPY
     Dosage: UNK
     Route: 065
  2. ACETYLSALICYLIC ACID MYLAN [Interacting]
     Active Substance: ASPIRIN
     Indication: ANTICOAGULANT THERAPY
     Dosage: UNK
     Route: 065
  3. CEFUROXIME. [Concomitant]
     Active Substance: CEFUROXIME
     Indication: ABSCESS NECK
     Dosage: UNK
     Route: 065

REACTIONS (15)
  - Labelled drug-drug interaction medication error [Recovered/Resolved]
  - Abscess neck [Recovered/Resolved]
  - Syncope [Recovered/Resolved]
  - Gastrointestinal haemorrhage [Recovered/Resolved]
  - Haematemesis [Recovered/Resolved]
  - Mobility decreased [Recovered/Resolved]
  - Shock haemorrhagic [Recovered/Resolved]
  - Multiple organ dysfunction syndrome [Recovered/Resolved]
  - Asthenia [Recovered/Resolved]
  - Anaemia [Recovered/Resolved]
  - Melaena [Recovered/Resolved]
  - Acute respiratory failure [Recovered/Resolved]
  - Septic shock [Recovered/Resolved]
  - Sepsis syndrome [Unknown]
  - Gastric ulcer [Recovered/Resolved]
